FAERS Safety Report 7579641-9 (Version None)
Quarter: 2011Q2

REPORT INFORMATION
  Report Type: 
  Country: None (occurrence: None)
  Receive Date: 20110629
  Receipt Date: 20110623
  Transmission Date: 20111010
  Serious: Yes (Death)
  Sender: FDA-Public Use
  Company Number: US-AMGEN-USASP2011027251

PATIENT
  Sex: Male
  Weight: 68.481 kg

DRUGS (1)
  1. NPLATE [Suspect]
     Indication: IDIOPATHIC THROMBOCYTOPENIC PURPURA
     Dosage: 70 A?G, UNK
     Dates: start: 20090119, end: 20110215

REACTIONS (1)
  - NON-SMALL CELL LUNG CANCER STAGE IV [None]
